FAERS Safety Report 7653229-3 (Version None)
Quarter: 2011Q3

REPORT INFORMATION
  Report Type: 
  Country: None (occurrence: None)
  Receive Date: 20110802
  Receipt Date: 20110802
  Transmission Date: 20111222
  Serious: Yes (Hospitalization)
  Sender: FDA-Public Use
  Company Number: None

PATIENT
  Sex: Female
  Weight: 52.1637 kg

DRUGS (1)
  1. ASPIRIN [Suspect]
     Indication: HEADACHE
     Dosage: 650 MG ONCE ORAL
     Route: 048
     Dates: start: 20110702

REACTIONS (7)
  - NAUSEA [None]
  - MIGRAINE [None]
  - BLINDNESS [None]
  - TINNITUS [None]
  - VOMITING [None]
  - DIZZINESS [None]
  - DISORIENTATION [None]
